FAERS Safety Report 9519320 (Version 1)
Quarter: 2013Q3

REPORT INFORMATION
  Report Type: Spontaneous
  Country: US (occurrence: None)
  Receive Date: 20130911
  Receipt Date: 20130911
  Transmission Date: 20140515
  Serious: Yes (Hospitalization)
  Sender: FDA-Public Use
  Company Number: None

PATIENT
  Sex: Male
  Weight: 78.2 kg

DRUGS (1)
  1. LISINOPRIL [Suspect]
     Indication: HYPERTENSION
     Dosage: 1/2 TAB EVERYDAY DAY PO
     Route: 048
     Dates: start: 20100320, end: 20100413

REACTIONS (2)
  - Renal failure acute [None]
  - Hyperkalaemia [None]
